FAERS Safety Report 8915187 (Version 1)
Quarter: 2012Q4

REPORT INFORMATION
  Report Type: 
  Country: PL (occurrence: PL)
  Receive Date: 20121119
  Receipt Date: 20121119
  Transmission Date: 20130627
  Serious: Yes (Death, Hospitalization)
  Sender: FDA-Public Use
  Company Number: PL-CELGENEUS-129-50794-12111770

PATIENT
  Age: 61 Year
  Sex: Male

DRUGS (1)
  1. VIDAZA [Suspect]
     Indication: ACUTE MYELOID LEUKEMIA
     Route: 065
     Dates: start: 201208, end: 201210

REACTIONS (4)
  - Sudden death [Fatal]
  - Anaemia [Unknown]
  - Pyrexia [Unknown]
  - Sepsis [Unknown]
